FAERS Safety Report 19978052 (Version 1)
Quarter: 2021Q4

REPORT INFORMATION
  Report Type: Spontaneous
  Country: US (occurrence: US)
  Receive Date: 20211020
  Receipt Date: 20211020
  Transmission Date: 20220303
  Serious: No
  Sender: FDA-Public Use
  Company Number: None

PATIENT
  Sex: Female

DRUGS (1)
  1. REVATIO [Suspect]
     Active Substance: SILDENAFIL CITRATE
     Indication: Fallot^s tetralogy
     Route: 048
     Dates: start: 20210901

REACTIONS (3)
  - Infection [None]
  - Vomiting [None]
  - Respiratory disorder [None]
